FAERS Safety Report 8234166-2 (Version None)
Quarter: 2012Q1

REPORT INFORMATION
  Report Type: 
  Country: None (occurrence: None)
  Receive Date: 20120326
  Receipt Date: 20120315
  Transmission Date: 20120608
  Serious: Yes (Hospitalization, Other)
  Sender: FDA-Public Use
  Company Number: US-BRISTOL-MYERS SQUIBB COMPANY-16139321

PATIENT
  Age: 59 Year
  Sex: Male
  Weight: 71 kg

DRUGS (5)
  1. CISPLATIN [Suspect]
     Indication: NON-SMALL CELL LUNG CANCER
     Dosage: LAST ADMIN: 26SEP11.
     Route: 065
     Dates: start: 20110725
  2. CETUXIMAB [Suspect]
     Indication: NON-SMALL CELL LUNG CANCER
     Dosage: LAST ADMIN: 26SEP11.
     Route: 065
     Dates: start: 20110725
  3. GEMCITABINE HYDROCHLORIDE [Suspect]
     Indication: NON-SMALL CELL LUNG CANCER
     Dosage: LAST ADMIN: 26SEP11.
     Route: 065
     Dates: start: 20110725
  4. ALBUTEROL [Concomitant]
  5. ATROVENT [Concomitant]

REACTIONS (3)
  - DEHYDRATION [None]
  - DEEP VEIN THROMBOSIS [None]
  - WOUND INFECTION PSEUDOMONAS [None]
